FAERS Safety Report 11072701 (Version 1)
Quarter: 2015Q2

REPORT INFORMATION
  Report Type: Spontaneous
  Country: AU (occurrence: AU)
  Receive Date: 20150428
  Receipt Date: 20150428
  Transmission Date: 20150821
  Serious: Yes (Hospitalization)
  Sender: FDA-Public Use
  Company Number: AU-ASTRAZENECA-2015SE37311

PATIENT
  Age: 63 Year
  Sex: Male

DRUGS (9)
  1. CYCLOSPORINE. [Interacting]
     Active Substance: CYCLOSPORINE
     Indication: IMMUNOSUPPRESSANT DRUG THERAPY
  2. FRUSEMIDE [Concomitant]
     Active Substance: FUROSEMIDE
  3. SIROLIMUS. [Concomitant]
     Active Substance: SIROLIMUS
  4. HYDROCHLOROTHIAZIDE. [Concomitant]
     Active Substance: HYDROCHLOROTHIAZIDE
  5. ROSUVASTATIN [Suspect]
     Active Substance: ROSUVASTATIN
     Indication: DYSLIPIDAEMIA
     Route: 048
  6. ALLOPURINOL. [Concomitant]
     Active Substance: ALLOPURINOL
  7. ATENOLOL. [Concomitant]
     Active Substance: ATENOLOL
  8. PREDNISOLONE. [Concomitant]
     Active Substance: PREDNISOLONE
  9. IRBESARTAN. [Concomitant]
     Active Substance: IRBESARTAN

REACTIONS (4)
  - Lethargy [Unknown]
  - Labelled drug-drug interaction medication error [Recovered/Resolved]
  - Acute kidney injury [Recovered/Resolved]
  - Rhabdomyolysis [Recovered/Resolved]
